FAERS Safety Report 8512119-4 (Version None)
Quarter: 2012Q3

REPORT INFORMATION
  Report Type: 
  Country: None (occurrence: None)
  Receive Date: 20120716
  Receipt Date: 20120710
  Transmission Date: 20120928
  Serious: Yes (Life-Threatening, Hospitalization)
  Sender: FDA-Public Use
  Company Number: US-ASTRAZENECA-2012MN29198

PATIENT
  Age: 43 Day
  Sex: Male
  Weight: 4.5 kg

DRUGS (1)
  1. SYNAGIS [Suspect]
     Route: 030
     Dates: start: 20120305, end: 20120305

REACTIONS (2)
  - SEPTIC SHOCK [None]
  - RESPIRATORY FAILURE [None]
